FAERS Safety Report 24448799 (Version 3)
Quarter: 2024Q4

REPORT INFORMATION
  Report Type: Spontaneous
  Country: US (occurrence: US)
  Receive Date: 20241017
  Receipt Date: 20241106
  Transmission Date: 20250115
  Serious: Yes (Hospitalization)
  Sender: ROCHE
  Company Number: US-ROCHE-10000104483

PATIENT
  Age: 55 Year
  Sex: Female
  Weight: 65.2 kg

DRUGS (2)
  1. HERCEPTIN [Suspect]
     Active Substance: TRASTUZUMAB
     Indication: Breast cancer female
     Dosage: 232 MG IV FOR LOADING DOSE THEN CONTINUE WITH WEEKLY DOSING ON WEEK 2-12
     Route: 042
     Dates: start: 20241007
  2. PACLITAXEL [Concomitant]
     Active Substance: PACLITAXEL

REACTIONS (4)
  - Dehydration [Recovered/Resolved]
  - Nausea [Recovered/Resolved]
  - Tachycardia [Recovered/Resolved]
  - Asthenia [Recovered/Resolved]

NARRATIVE: CASE EVENT DATE: 20241017
